FAERS Safety Report 8619078-4 (Version None)
Quarter: 2012Q3

REPORT INFORMATION
  Report Type: 
  Country: None (occurrence: None)
  Receive Date: 20120824
  Receipt Date: 20120814
  Transmission Date: 20120928
  Serious: Yes (Hospitalization)
  Sender: FDA-Public Use
  Company Number: JP-BAYER-2012-052395

PATIENT
  Age: 65 Year
  Sex: Male
  Weight: 63 kg

DRUGS (14)
  1. NEXAVAR [Suspect]
     Indication: HEPATIC NEOPLASM MALIGNANT
     Dosage: 400 MG, BID
     Route: 048
     Dates: start: 20120515, end: 20120727
  2. LOXONIN [Concomitant]
     Indication: ANALGESIC THERAPY
     Dosage: DAILY DOSE 120 MG
     Route: 048
  3. LENDORMIN [Concomitant]
     Indication: INSOMNIA
     Dosage: DAILY DOSE 0.25 MG
     Route: 048
  4. LIVACT [Concomitant]
     Indication: LIVER DISORDER
     Dosage: DAILY DOSE 12.450 G
     Route: 048
  5. ALLOPURINOL [Concomitant]
     Indication: HYPERURICAEMIA
     Dosage: DAILY DOSE 200 MG
     Route: 048
  6. AMLODIPINE [Concomitant]
     Indication: HYPERTENSION
     Dosage: DAILY DOSE 5 MG
     Route: 048
  7. NEXAVAR [Suspect]
     Dosage: DAILY DOSE 400 MG
     Route: 048
     Dates: start: 20120803
  8. MICARDIS [Concomitant]
     Indication: HYPERTENSION
     Dosage: DAILY DOSE 40 MG
     Route: 048
     Dates: start: 20120515
  9. PRAVASTATIN SODIUM [Concomitant]
     Indication: HYPERLIPIDAEMIA
     Dosage: DAILY DOSE 10 MG
     Route: 048
  10. URSO 250 [Concomitant]
     Indication: LIVER DISORDER
     Dosage: DAILY DOSE 600 MG
     Route: 048
  11. LANSOPRAZOLE [Concomitant]
     Indication: GASTRITIS PROPHYLAXIS
     Dosage: DAILY DOSE 15 MG
     Route: 048
  12. PURSENNID [Concomitant]
     Indication: CONSTIPATION
     Dosage: DAILY DOSE 24 MG
     Route: 048
  13. DOXAZOSIN MESYLATE [Concomitant]
     Indication: HYPERTENSION
     Dosage: DAILY DOSE 2 MG
     Route: 048
  14. ENALAPRIL MALEATE [Concomitant]
     Indication: HYPERTENSION
     Dosage: DAILY DOSE 10 MG
     Route: 048

REACTIONS (5)
  - PYREXIA [None]
  - ASPARTATE AMINOTRANSFERASE INCREASED [None]
  - C-REACTIVE PROTEIN INCREASED [None]
  - DIARRHOEA [None]
  - RASH [None]
